FAERS Safety Report 18844101 (Version 1)
Quarter: 2021Q1

REPORT INFORMATION
  Report Type: Report from Study
  Country: CA (occurrence: CA)
  Receive Date: 20210203
  Receipt Date: 20210203
  Transmission Date: 20210419
  Serious: No
  Sender: FDA-Public Use
  Company Number: CA-EXELIXIS-CABO-20031246

PATIENT
  Sex: Male

DRUGS (5)
  1. VITAMIN E [Concomitant]
     Active Substance: .ALPHA.-TOCOPHEROL
  2. VITAMIN B [Concomitant]
     Active Substance: VITAMIN B
  3. CABOMETYX [Suspect]
     Active Substance: CABOZANTINIB S-MALATE
     Indication: HEPATOCELLULAR CARCINOMA
     Dosage: 60 MG, QD
     Route: 048
     Dates: start: 20200516
  4. VITAMIN D [Concomitant]
     Active Substance: VITAMIN D NOS
  5. LENVIMA [Concomitant]
     Active Substance: LENVATINIB

REACTIONS (1)
  - General physical health deterioration [Unknown]
